FAERS Safety Report 4360803-9 (Version None)
Quarter: 2004Q2

REPORT INFORMATION
  Report Type: 
  Country: None (occurrence: None)
  Receive Date: 20040517
  Receipt Date: 20040504
  Transmission Date: 20050107
  Serious: Yes (Other)
  Sender: FDA-Public Use
  Company Number: HQWYE703104MAY04

PATIENT
  Age: 34 Year
  Sex: Female

DRUGS (1)
  1. NEOGYNON (LEVONORGESTREL/ETHINYL ESTRADIOL, TABLET) [Suspect]
     Indication: MENORRHAGIA
     Dosage: ORAL
     Route: 048
     Dates: start: 20040101, end: 20040423

REACTIONS (4)
  - ALANINE AMINOTRANSFERASE INCREASED [None]
  - ARRHYTHMIA [None]
  - ASPARTATE AMINOTRANSFERASE INCREASED [None]
  - DRUG INTOLERANCE [None]
